FAERS Safety Report 6675583-1 (Version None)
Quarter: 2010Q2

REPORT INFORMATION
  Report Type: 
  Country: None (occurrence: None)
  Receive Date: 20100409
  Receipt Date: 20100330
  Transmission Date: 20101027
  Serious: Yes (Other)
  Sender: FDA-Public Use
  Company Number: PHEH2010US03298

PATIENT
  Sex: Female
  Weight: 87.528 kg

DRUGS (1)
  1. FEMARA [Suspect]
     Dosage: 2.5 DAILY
     Route: 048
     Dates: start: 20080623, end: 20100324

REACTIONS (4)
  - ARTHROPATHY [None]
  - FALL [None]
  - KNEE OPERATION [None]
  - OSTEOPENIA [None]
